FAERS Safety Report 6732410-1 (Version None)
Quarter: 2010Q2

REPORT INFORMATION
  Report Type: 
  Country: None (occurrence: None)
  Receive Date: 20100519
  Receipt Date: 20100128
  Transmission Date: 20101027
  Serious: Yes (Hospitalization)
  Sender: FDA-Public Use
  Company Number: CG-MERCK-1005USA02288

PATIENT
  Age: 50 Year
  Sex: Female

DRUGS (1)
  1. STROMECTOL [Suspect]
     Route: 048
     Dates: start: 20090928, end: 20090928

REACTIONS (9)
  - ASTHENIA [None]
  - COMA [None]
  - DIARRHOEA [None]
  - EXPRESSIVE LANGUAGE DISORDER [None]
  - GAIT DISTURBANCE [None]
  - HEADACHE [None]
  - PYREXIA [None]
  - URINARY RETENTION [None]
  - VOMITING [None]
